FAERS Safety Report 18304725 (Version 2)
Quarter: 2020Q4

REPORT INFORMATION
  Report Type: Other
  Country: US (occurrence: US)
  Receive Date: 20200924
  Receipt Date: 20201017
  Transmission Date: 20210113
  Serious: Yes (Other)
  Sender: FDA-Public Use
  Company Number: US-ROCHE-2679842

PATIENT
  Age: 59 Year
  Sex: Male
  Weight: 77.18 kg

DRUGS (16)
  1. OXYBUTYNIN. [Concomitant]
     Active Substance: OXYBUTYNIN CHLORIDE
     Indication: BLADDER SPASM
  2. MULTIVITAMIN [Concomitant]
     Active Substance: VITAMINS
  3. BUPROPION. [Concomitant]
     Active Substance: BUPROPION
     Indication: DEPRESSION
  4. OCREVUS [Suspect]
     Active Substance: OCRELIZUMAB
     Indication: PROGRESSIVE MULTIPLE SCLEROSIS
     Dosage: ONGOING : YES
     Route: 042
     Dates: start: 20190501
  5. CALCIUM [Concomitant]
     Active Substance: CALCIUM
     Indication: OSTEOPOROSIS
  6. SALINE [Concomitant]
     Active Substance: SODIUM CHLORIDE
     Dosage: DAILY IN URINARY CATHETER ; ONGOING : YES
  7. BENADRYL [Concomitant]
     Active Substance: DIPHENHYDRAMINE HYDROCHLORIDE
     Indication: PREMEDICATION
  8. TEMAZEPAM. [Concomitant]
     Active Substance: TEMAZEPAM
     Dosage: AT NIGHT ; ONGOING : YES
  9. SELSUN BLUE [Concomitant]
     Active Substance: SELENIUM SULFIDE
     Dosage: ALTERNATE WITH KETOCONAZOL
     Route: 061
  10. TYLENOL [Concomitant]
     Active Substance: ACETAMINOPHEN
     Indication: PREMEDICATION
  11. LISINOPRIL. [Concomitant]
     Active Substance: LISINOPRIL
     Indication: HYPERTENSION
  12. CRANBERRY. [Concomitant]
     Active Substance: CRANBERRY
     Indication: URINARY TRACT INFECTION
  13. VITAMIN D3 [Concomitant]
     Active Substance: CHOLECALCIFEROL
     Indication: OSTEOPOROSIS
  14. SOLU-MEDROL [Concomitant]
     Active Substance: METHYLPREDNISOLONE SODIUM SUCCINATE
     Indication: PREMEDICATION
  15. ALENDRONATE [Concomitant]
     Active Substance: ALENDRONATE SODIUM
     Indication: OSTEOPOROSIS
  16. KETOCONAZOLE. [Concomitant]
     Active Substance: KETOCONAZOLE
     Dosage: ALTERNATES WITH SELSUN BLUE SHAMPOO
     Route: 061

REACTIONS (5)
  - Urinary tract infection [Recovered/Resolved]
  - Ill-defined disorder [Unknown]
  - Urticaria [Recovered/Resolved]
  - Renal cell carcinoma [Recovered/Resolved]
  - Fungal skin infection [Unknown]

NARRATIVE: CASE EVENT DATE: 20190501
